FAERS Safety Report 13463168 (Version 4)
Quarter: 2021Q4

REPORT INFORMATION
  Report Type: Report from Study
  Country: SG (occurrence: SG)
  Receive Date: 20170420
  Receipt Date: 20211117
  Transmission Date: 20220303
  Serious: Yes (Hospitalization, Other)
  Sender: FDA-Public Use
  Company Number: SG-AMGEN-SGPCT2017059902

PATIENT
  Age: 67 Year
  Sex: Female
  Weight: 48 kg

DRUGS (4)
  1. CARFILZOMIB [Suspect]
     Active Substance: CARFILZOMIB
     Indication: Plasma cell myeloma
     Dosage: 52 MG, PER CHEMO REGIM
     Route: 042
     Dates: start: 20150901, end: 20170412
  2. DIAMOX SEQUELS [Concomitant]
     Active Substance: ACETAZOLAMIDE
     Dosage: 250-500 MILLIGRAM
     Route: 042
     Dates: start: 20170208
  3. ALPHAGAN P [Concomitant]
     Active Substance: BRIMONIDINE TARTRATE
     Dosage: UNK UNK, TID
     Route: 031
     Dates: start: 20170208
  4. TIMOLOL [Concomitant]
     Active Substance: TIMOLOL
     Dosage: UNK UNK, BID
     Route: 031
     Dates: start: 20170208

REACTIONS (1)
  - Cytomegalovirus chorioretinitis [Recovered/Resolved]

NARRATIVE: CASE EVENT DATE: 20170418
